FAERS Safety Report 4826703-2 (Version None)
Quarter: 2005Q4

REPORT INFORMATION
  Report Type: 
  Country: None (occurrence: None)
  Receive Date: 20051112
  Receipt Date: 20051103
  Transmission Date: 20060501
  Serious: Yes (Other)
  Sender: FDA-Public Use
  Company Number: US-ABBOTT-05P-163-0316820-00

PATIENT
  Sex: Female
  Weight: 130 kg

DRUGS (1)
  1. MERIDIA [Suspect]
     Indication: OBESITY
     Dates: start: 20050718, end: 20050722

REACTIONS (2)
  - ATRIOVENTRICULAR BLOCK FIRST DEGREE [None]
  - HYPOTHYROIDISM [None]
